FAERS Safety Report 4822820-1 (Version None)
Quarter: 2005Q4

REPORT INFORMATION
  Report Type: 
  Country: None (occurrence: None)
  Receive Date: 20051104
  Receipt Date: 20051024
  Transmission Date: 20060501
  Serious: Yes (Hospitalization, Other)
  Sender: FDA-Public Use
  Company Number: 2005146091

PATIENT
  Sex: Male
  Weight: 81.6475 kg

DRUGS (8)
  1. DEPO-MEDROL [Suspect]
     Indication: INTERVERTEBRAL DISC PROTRUSION
     Dosage: (160 MG), EPIDURAL
     Route: 008
     Dates: start: 20030201
  2. NEURONTIN [Suspect]
     Indication: BACK PAIN
  3. ZOLOFT [Suspect]
     Indication: DEPRESSION
     Dosage: 50 MG
     Dates: start: 20030101, end: 20030101
  4. ATENOLOL [Concomitant]
  5. ALTACE [Concomitant]
  6. ASPIRIN [Concomitant]
  7. ZOCOR [Concomitant]
  8. ANALGESICS (ANALGESICS) [Concomitant]

REACTIONS (9)
  - AMNESIA [None]
  - ARTHRALGIA [None]
  - CHILLS [None]
  - DEPRESSION [None]
  - FEELING ABNORMAL [None]
  - HEADACHE [None]
  - OSTEONECROSIS [None]
  - SUICIDAL IDEATION [None]
  - VISUAL DISTURBANCE [None]
